FAERS Safety Report 4329937-9 (Version None)
Quarter: 2004Q1

REPORT INFORMATION
  Report Type: 
  Country: None (occurrence: None)
  Receive Date: 20040329
  Receipt Date: 20040319
  Transmission Date: 20041129
  Serious: Yes (Death, Life-Threatening)
  Sender: FDA-Public Use
  Company Number: 2004AP01410

PATIENT
  Age: 63 Year
  Sex: Male

DRUGS (10)
  1. IRESSA [Suspect]
     Indication: LUNG ADENOCARCINOMA
     Dosage: 250 MG DAILY PO
     Route: 048
     Dates: start: 20040224, end: 20040302
  2. IRESSA [Suspect]
     Indication: NON-SMALL CELL LUNG CANCER
     Dosage: 250 MG DAILY PO
     Route: 048
     Dates: start: 20040224, end: 20040302
  3. MAGNESIUM OXIDE [Concomitant]
  4. OMEPRAZOLE [Concomitant]
  5. PRIMAXIN [Concomitant]
  6. RADIATION THERAPY [Concomitant]
  7. CARBOPLATIN [Concomitant]
  8. PACLITAXEL [Concomitant]
  9. DOCETAXEL [Concomitant]
  10. CRAVIT [Concomitant]

REACTIONS (17)
  - BLOOD BICARBONATE DECREASED [None]
  - BLOOD LACTATE DEHYDROGENASE INCREASED [None]
  - BLOOD PH INCREASED [None]
  - C-REACTIVE PROTEIN INCREASED [None]
  - CHEST X-RAY ABNORMAL [None]
  - COMPUTERISED TOMOGRAM ABNORMAL [None]
  - CONDITION AGGRAVATED [None]
  - DISSEMINATED INTRAVASCULAR COAGULATION [None]
  - DRUG INEFFECTIVE [None]
  - DYSPNOEA [None]
  - LUNG DISORDER [None]
  - LUNG INFECTION [None]
  - LUNG NEOPLASM MALIGNANT [None]
  - OXYGEN SATURATION DECREASED [None]
  - PCO2 DECREASED [None]
  - PO2 DECREASED [None]
  - SPUTUM DISCOLOURED [None]
